FAERS Safety Report 7360553-0 (Version None)
Quarter: 2011Q1

REPORT INFORMATION
  Report Type: 
  Country: None (occurrence: None)
  Receive Date: 20110318
  Receipt Date: 20110307
  Transmission Date: 20110831
  Serious: Yes (Hospitalization)
  Sender: FDA-Public Use
  Company Number: US-BAYER-2011-001789

PATIENT
  Sex: Male

DRUGS (2)
  1. NEXAVAR [Suspect]
     Dosage: 400 MG, BID
     Route: 048
     Dates: start: 20101210
  2. NEXAVAR [Suspect]
     Indication: THYROID CANCER
     Dosage: 400 MG, BID
     Route: 048
     Dates: start: 20101210

REACTIONS (7)
  - ADVERSE DRUG REACTION [None]
  - PRURITUS [None]
  - DRY SKIN [None]
  - HOSPITALISATION [None]
  - DRY MOUTH [None]
  - FATIGUE [None]
  - DECREASED APPETITE [None]
